FAERS Safety Report 7377083-2 (Version None)
Quarter: 2011Q1

REPORT INFORMATION
  Report Type: 
  Country: None (occurrence: None)
  Receive Date: 20110328
  Receipt Date: 20110316
  Transmission Date: 20110831
  Serious: No
  Sender: FDA-Public Use
  Company Number: US-BIOGENIDEC-2011BI010192

PATIENT
  Age: 47 Year
  Sex: Female

DRUGS (1)
  1. TYSABRI [Suspect]
     Indication: MULTIPLE SCLEROSIS
     Route: 042
     Dates: start: 20110118

REACTIONS (6)
  - BLEPHAROSPASM [None]
  - MUSCULAR WEAKNESS [None]
  - PARAESTHESIA [None]
  - HYPOAESTHESIA FACIAL [None]
  - FATIGUE [None]
  - GASTROENTERITIS VIRAL [None]
